FAERS Safety Report 19743380 (Version 5)
Quarter: 2021Q4

REPORT INFORMATION
  Report Type: Report from Study
  Country: JP (occurrence: JP)
  Receive Date: 20210824
  Receipt Date: 20211103
  Transmission Date: 20220303
  Serious: Yes (Life-Threatening, Hospitalization)
  Sender: FDA-Public Use
  Company Number: JP-JNJFOC-20210833224

PATIENT
  Age: 23 Year
  Sex: Female
  Weight: 64.1 kg

DRUGS (49)
  1. IBRUTINIB [Suspect]
     Active Substance: IBRUTINIB
     Indication: Chronic graft versus host disease
     Route: 048
     Dates: start: 20181017, end: 20210428
  2. IBRUTINIB [Suspect]
     Active Substance: IBRUTINIB
     Route: 048
     Dates: start: 20210514, end: 20210519
  3. IBRUTINIB [Suspect]
     Active Substance: IBRUTINIB
     Route: 048
     Dates: start: 20210520, end: 20210526
  4. CHONDROITIN SULFATE (BOVINE) [Concomitant]
     Active Substance: CHONDROITIN SULFATE (BOVINE)
     Indication: Chronic graft versus host disease
     Route: 061
  5. HYALURONATE SODIUM [Concomitant]
     Active Substance: HYALURONATE SODIUM
     Indication: Prophylaxis
  6. PETROLATUM [Concomitant]
     Active Substance: PETROLATUM
     Indication: Skin disorder prophylaxis
     Route: 061
     Dates: start: 20181226
  7. ZOLPIDEM [Concomitant]
     Active Substance: ZOLPIDEM TARTRATE
     Indication: Insomnia
     Route: 048
     Dates: start: 20181019
  8. AZULENE [Concomitant]
     Active Substance: AZULENE
     Indication: Stomatitis
     Dates: start: 20190728
  9. MIYA-BM [Concomitant]
     Active Substance: CLOSTRIDIUM BUTYRICUM SPORES STRAIN M-55
     Indication: Prophylaxis
     Route: 048
     Dates: start: 20190809
  10. PEMAFIBRATE [Concomitant]
     Active Substance: PEMAFIBRATE
     Indication: Dyslipidaemia
     Route: 048
     Dates: start: 20190809
  11. LINAGLIPTIN [Concomitant]
     Active Substance: LINAGLIPTIN
     Indication: Glucose tolerance impaired
     Route: 048
     Dates: start: 20190814
  12. URSODIOL [Concomitant]
     Active Substance: URSODIOL
     Indication: Alanine aminotransferase increased
     Route: 048
     Dates: start: 20190822
  13. LORAZEPAM [Concomitant]
     Active Substance: LORAZEPAM
     Indication: Depression
     Route: 048
     Dates: start: 20191226
  14. FEBUXOSTAT [Concomitant]
     Active Substance: FEBUXOSTAT
     Indication: Hyperuricaemia
     Route: 048
     Dates: start: 20200708
  15. CARTEOLOL HYDROCHLORIDE\LATANOPROST [Concomitant]
     Active Substance: CARTEOLOL HYDROCHLORIDE\LATANOPROST
     Indication: Prophylaxis
     Route: 047
     Dates: start: 20200303
  16. ACYCLOVIR [Concomitant]
     Active Substance: ACYCLOVIR
     Indication: Prophylaxis
     Route: 048
     Dates: start: 20201001
  17. TROPICAMIDE [Concomitant]
     Active Substance: TROPICAMIDE
     Indication: Cataract
     Route: 047
     Dates: start: 20201111
  18. TROPICAMIDE [Concomitant]
     Active Substance: TROPICAMIDE
     Indication: Glaucoma
  19. PHENYLEPHRINE HYDROCHLORIDE\TROPICAMIDE [Concomitant]
     Active Substance: PHENYLEPHRINE HYDROCHLORIDE\TROPICAMIDE
     Indication: Cataract
     Route: 047
     Dates: start: 20210127
  20. PHENYLEPHRINE HYDROCHLORIDE\TROPICAMIDE [Concomitant]
     Active Substance: PHENYLEPHRINE HYDROCHLORIDE\TROPICAMIDE
     Indication: Glaucoma
  21. ATOVAQUONE [Concomitant]
     Active Substance: ATOVAQUONE
     Indication: Prophylaxis
     Route: 048
     Dates: start: 20210428
  22. SUPLATAST TOSILATE [Concomitant]
     Active Substance: SUPLATAST TOSILATE
     Indication: Chronic graft versus host disease
     Route: 048
     Dates: start: 20210509
  23. SUPLATAST TOSILATE [Concomitant]
     Active Substance: SUPLATAST TOSILATE
     Indication: Chronic graft versus host disease
     Route: 048
     Dates: start: 20210811, end: 20210814
  24. CLOBETASOL PROPIONATE [Concomitant]
     Active Substance: CLOBETASOL PROPIONATE
     Indication: Chronic graft versus host disease
     Route: 061
     Dates: start: 20210514
  25. LOCOID [Concomitant]
     Active Substance: HYDROCORTISONE BUTYRATE
     Indication: Chronic graft versus host disease
     Route: 061
     Dates: start: 20210514
  26. DIFLUCORTOLONE VALERATE [Concomitant]
     Active Substance: DIFLUCORTOLONE VALERATE
     Indication: Chronic graft versus host disease
     Route: 061
     Dates: start: 20210517
  27. VFEND [Concomitant]
     Active Substance: VORICONAZOLE
     Indication: Prophylaxis
     Route: 048
     Dates: start: 20210521
  28. PROTOPIC [Concomitant]
     Active Substance: TACROLIMUS
     Indication: Chronic graft versus host disease
     Route: 061
     Dates: start: 20210521
  29. POLARAMINE [Concomitant]
     Active Substance: DEXCHLORPHENIRAMINE MALEATE
     Indication: Prophylaxis
     Route: 042
     Dates: start: 20210526
  30. POLARAMINE [Concomitant]
     Active Substance: DEXCHLORPHENIRAMINE MALEATE
     Route: 042
     Dates: start: 20210813
  31. ACETAMINOPHEN\TRAMADOL HYDROCHLORIDE [Concomitant]
     Active Substance: ACETAMINOPHEN\TRAMADOL HYDROCHLORIDE
     Indication: Skin induration
     Route: 048
     Dates: start: 20210530
  32. RINDERON V [Concomitant]
     Active Substance: BETAMETHASONE VALERATE
     Indication: Chronic graft versus host disease
     Route: 061
     Dates: start: 20210527
  33. NEXIUM [Concomitant]
     Active Substance: ESOMEPRAZOLE MAGNESIUM
     Indication: Prophylaxis
     Route: 048
     Dates: start: 20210531
  34. PIRENOXINE [Concomitant]
     Active Substance: PIRENOXINE
     Indication: Cataract
     Route: 047
     Dates: start: 20210501
  35. HYDROXYZINE HYDROCHLORIDE [Concomitant]
     Active Substance: HYDROXYZINE HYDROCHLORIDE
     Indication: Insomnia
     Route: 048
     Dates: start: 20210605
  36. GLARGINE BS [Concomitant]
     Indication: Glucose tolerance impaired
     Dosage: 28 UNITS
     Route: 058
     Dates: start: 20210605
  37. NOVORAPID [Concomitant]
     Active Substance: INSULIN ASPART
     Indication: Glucose tolerance impaired
     Dosage: 10-28 UNITS
     Route: 058
     Dates: start: 20210611
  38. ACTONEL [Concomitant]
     Active Substance: RISEDRONATE SODIUM
     Indication: Prophylaxis
     Route: 048
     Dates: start: 20210610
  39. AZUNOL [Concomitant]
     Indication: Periodontitis
     Route: 061
     Dates: start: 20210630
  40. XYLOCAINE [Concomitant]
     Active Substance: LIDOCAINE HYDROCHLORIDE
     Indication: Periodontitis
     Dates: start: 20210630
  41. L-KEFLEX [Concomitant]
     Indication: Skin induration
     Route: 048
     Dates: start: 20210721
  42. ACETAMINOPHEN [Concomitant]
     Active Substance: ACETAMINOPHEN
     Indication: Skin induration
     Route: 048
     Dates: start: 20210728, end: 20210804
  43. CELECOXIB [Concomitant]
     Active Substance: CELECOXIB
     Indication: Skin induration
     Dates: start: 20210804
  44. EPISIL [Concomitant]
     Indication: Chronic graft versus host disease
     Route: 061
     Dates: start: 20210804
  45. FILGRASTIM BS [FILGRASTIM BIOSIMILAR 2] [Concomitant]
     Indication: Neutrophil count decreased
     Route: 042
     Dates: start: 20210813
  46. FUROSEMIDE [Concomitant]
     Active Substance: FUROSEMIDE
     Indication: Cardiac failure
     Dosage: 40-60 MG
     Route: 042
     Dates: start: 20210814
  47. OMEPRAZOLE [Concomitant]
     Active Substance: OMEPRAZOLE
     Indication: Prophylaxis against gastrointestinal ulcer
     Route: 042
     Dates: start: 20210815
  48. POLAPREZINC [Concomitant]
     Active Substance: POLAPREZINC
     Indication: Anaemia
     Route: 048
     Dates: start: 20210811, end: 20210812
  49. NALFURAFINE HYDROCHLORIDE [Concomitant]
     Active Substance: NALFURAFINE HYDROCHLORIDE
     Indication: Chronic graft versus host disease
     Dates: start: 20200916, end: 20210813

REACTIONS (2)
  - Sepsis [Recovered/Resolved]
  - Cerebral haemorrhage [Not Recovered/Not Resolved]

NARRATIVE: CASE EVENT DATE: 20210813
